FAERS Safety Report 8383529 (Version 2)
Quarter: 2015Q2

REPORT INFORMATION
  Report Type: Report from Study
  Country: US (occurrence: US)
  Receive Date: 20120130
  Receipt Date: 20150619
  Transmission Date: 20150821
  Serious: Yes (Death, Other)
  Sender: FDA-Public Use
  Company Number: US-ROCHE-1034361

PATIENT
  Sex: Male

DRUGS (12)
  1. TAXOTERE [Concomitant]
     Active Substance: DOCETAXEL
     Route: 042
  2. ARANESP [Concomitant]
     Active Substance: DARBEPOETIN ALFA
     Route: 065
  3. ZOFRAN [Concomitant]
     Active Substance: ONDANSETRON HYDROCHLORIDE
     Route: 042
  4. IRON DEXTRAN [Concomitant]
     Active Substance: IRON DEXTRAN
     Route: 065
  5. DECADRON [Concomitant]
     Active Substance: DEXAMETHASONE
     Route: 042
  6. ZOFRAN [Concomitant]
     Active Substance: ONDANSETRON HYDROCHLORIDE
     Route: 042
  7. AVASTIN [Suspect]
     Active Substance: BEVACIZUMAB
     Indication: PROSTATE CANCER
     Route: 042
     Dates: start: 20060801
  8. PROCRIT [Concomitant]
     Active Substance: ERYTHROPOIETIN
     Route: 065
  9. ZOLADEX [Concomitant]
     Active Substance: GOSERELIN ACETATE
  10. CODEINE [Concomitant]
     Active Substance: CODEINE
     Indication: COUGH
     Dosage: 1 TABLESPOON
     Route: 048
  11. HEPARIN [Concomitant]
     Active Substance: HEPARIN SODIUM
     Route: 065
  12. KEFLEX [Concomitant]
     Active Substance: CEPHALEXIN
     Route: 065

REACTIONS (9)
  - Death [Fatal]
  - Nausea [Unknown]
  - Upper respiratory tract infection [Unknown]
  - Fatigue [Unknown]
  - Pain [Unknown]
  - Cough [Unknown]
  - Off label use [Unknown]
  - Aplastic anaemia [Unknown]
  - Dehydration [Unknown]
